FAERS Safety Report 17005990 (Version 2)
Quarter: 2021Q3

REPORT INFORMATION
  Report Type: Spontaneous
  Country: PL (occurrence: PL)
  Receive Date: 20191107
  Receipt Date: 20210929
  Transmission Date: 20211014
  Serious: Yes (Life-Threatening, Hospitalization, Other)
  Sender: FDA-Public Use
  Company Number: PL-MYLANLABS-2019M1106256

PATIENT
  Age: 30 Year
  Sex: Female

DRUGS (4)
  1. ILOPROST. [Suspect]
     Active Substance: ILOPROST
     Indication: PULMONARY ARTERIAL HYPERTENSION
     Dosage: UNK
     Route: 065
  2. DILTIAZEM                          /00489702/ [Suspect]
     Active Substance: DILTIAZEM
     Indication: PULMONARY ARTERIAL HYPERTENSION
     Dosage: UNK
  3. VELETRI [Suspect]
     Active Substance: EPOPROSTENOL
     Indication: PULMONARY ARTERIAL HYPERTENSION
     Dosage: UNK
     Route: 042
  4. SILDENAFIL. [Suspect]
     Active Substance: SILDENAFIL
     Indication: PULMONARY ARTERIAL HYPERTENSION
     Dosage: UNK
     Route: 055

REACTIONS (12)
  - Premature delivery [Unknown]
  - Cardiogenic shock [Recovered/Resolved]
  - Pulmonary arterial hypertension [Recovering/Resolving]
  - Premature separation of placenta [Unknown]
  - Drug ineffective [Unknown]
  - Maternal exposure before pregnancy [Unknown]
  - Haemoperitoneum [Unknown]
  - Respiratory failure [Unknown]
  - Respiratory tract infection [Unknown]
  - Septic shock [Unknown]
  - Respiratory tract haemorrhage [Unknown]
  - Thrombocytopenia [Unknown]
